FAERS Safety Report 12206569 (Version 1)
Quarter: 2016Q1

REPORT INFORMATION
  Report Type: Spontaneous
  Country: US (occurrence: None)
  Receive Date: 20160323
  Receipt Date: 20160323
  Transmission Date: 20160526
  Serious: Yes (Disabling)
  Sender: FDA-Public Use
  Company Number: None

PATIENT
  Age: 70 Year
  Sex: Female
  Weight: 68.04 kg

DRUGS (19)
  1. MAXALT [Concomitant]
     Active Substance: RIZATRIPTAN BENZOATE
  2. NYSTATIN. [Concomitant]
     Active Substance: NYSTATIN
  3. ASPIRIN. [Concomitant]
     Active Substance: ASPIRIN
  4. ATORVASTATIN 10 MG DR REDDY^S [Suspect]
     Active Substance: ATORVASTATIN
     Indication: BLOOD CHOLESTEROL DECREASED
     Route: 048
     Dates: start: 20151124, end: 20151212
  5. FISH OIL [Concomitant]
     Active Substance: FISH OIL
  6. MIRALAX [Concomitant]
     Active Substance: POLYETHYLENE GLYCOL 3350
  7. LYRICA [Concomitant]
     Active Substance: PREGABALIN
  8. OMEPRAZOLE. [Concomitant]
     Active Substance: OMEPRAZOLE
  9. MAGNESIUM [Concomitant]
     Active Substance: MAGNESIUM
  10. PSYILLIUM HUSK [Concomitant]
  11. MULTIVITAMIN [Concomitant]
     Active Substance: VITAMINS
  12. NORTRIPTYLINE [Concomitant]
     Active Substance: NORTRIPTYLINE
  13. PROBOTIC [Concomitant]
     Active Substance: PROBIOTICS NOS
  14. KLONOPIN [Concomitant]
     Active Substance: CLONAZEPAM
  15. TYLENOL [Concomitant]
     Active Substance: ACETAMINOPHEN
  16. DYMISTA [Concomitant]
     Active Substance: AZELASTINE HYDROCHLORIDE\FLUTICASONE PROPIONATE
  17. ANEFRIN NASAL SPRAY [Concomitant]
  18. CALCIUM [Concomitant]
     Active Substance: CALCIUM
  19. VITAMIN D [Concomitant]
     Active Substance: CHOLECALCIFEROL

REACTIONS (4)
  - Urticaria [None]
  - Erythema [None]
  - Pruritus [None]
  - Rash [None]

NARRATIVE: CASE EVENT DATE: 20151212
